FAERS Safety Report 14829277 (Version 1)
Quarter: 2018Q2

REPORT INFORMATION
  Report Type: Spontaneous
  Country: FR (occurrence: FR)
  Receive Date: 20180430
  Receipt Date: 20180430
  Transmission Date: 20180711
  Serious: Yes (Other)
  Sender: FDA-Public Use
  Company Number: FR-TEVA-2018-FR-886382

PATIENT
  Age: 83 Year
  Sex: Female
  Weight: 68 kg

DRUGS (7)
  1. VITASCORBOL [Concomitant]
     Active Substance: ASCORBIC ACID
     Route: 048
  2. ACIDE FOLIQUE [Concomitant]
     Active Substance: FOLIC ACID
     Route: 048
  3. LANTUS [Concomitant]
     Active Substance: INSULIN GLARGINE
     Route: 058
  4. TAMSULOSINE ACTAVIS LP 0,4 MG, G?LULE ? LIB?RATION PROLONG?E [Suspect]
     Active Substance: TAMSULOSIN HYDROCHLORIDE
     Indication: URINARY RETENTION
     Route: 048
  5. INEXIUM 20 MG, COMPRIM? GASTRO-R?SISTANT [Suspect]
     Active Substance: ESOMEPRAZOLE MAGNESIUM
     Indication: PEPTIC ULCER
     Dosage: 40 MILLIGRAM DAILY;
     Route: 048
  6. LEVOTHYROX 75 MICROGRAMMES, COMPRIM? S?CABLE [Concomitant]
     Route: 065
  7. BISOCE [Concomitant]
     Active Substance: BISOPROLOL
     Route: 048

REACTIONS (1)
  - Agranulocytosis [Recovered/Resolved]
